FAERS Safety Report 16325880 (Version 1)
Quarter: 2019Q2

REPORT INFORMATION
  Report Type: Spontaneous
  Country: TR (occurrence: TR)
  Receive Date: 20190517
  Receipt Date: 20190517
  Transmission Date: 20190711
  Serious: Yes (Other)
  Sender: FDA-Public Use
  Company Number: TR-PFIZER INC-2019206097

PATIENT
  Sex: Male
  Weight: 2.3 kg

DRUGS (6)
  1. METHYLPREDNISOLONE ACETATE. [Suspect]
     Active Substance: METHYLPREDNISOLONE ACETATE
     Indication: EVANS SYNDROME
     Dosage: 1 MG/KG, UNK
     Route: 064
     Dates: start: 1999
  2. METHYLPREDNISOLONE ACETATE. [Suspect]
     Active Substance: METHYLPREDNISOLONE ACETATE
     Indication: HAEMOLYSIS
  3. CEFTRIAXONE. [Suspect]
     Active Substance: CEFTRIAXONE
     Indication: GONOCOCCAL INFECTION
     Dosage: 2 G, DAILY
     Route: 064
     Dates: start: 1999
  4. PENICILLIN G POTASSIUM. [Suspect]
     Active Substance: PENICILLIN G POTASSIUM
     Indication: GONOCOCCAL INFECTION
     Dosage: 10 MILLION IU, UNK
     Route: 064
     Dates: start: 1999
  5. METHYLPREDNISOLONE ACETATE. [Suspect]
     Active Substance: METHYLPREDNISOLONE ACETATE
     Indication: THROMBOCYTOPENIA
  6. RITODRINE [Suspect]
     Active Substance: RITODRINE
     Indication: TOCOLYSIS
     Dosage: UNK (INFUSION)
     Route: 064

REACTIONS (2)
  - Premature baby [Unknown]
  - Maternal exposure during pregnancy [Unknown]
